FAERS Safety Report 19192981 (Version 2)
Quarter: 2021Q2

REPORT INFORMATION
  Report Type: Spontaneous
  Country: US (occurrence: US)
  Receive Date: 20210429
  Receipt Date: 20210603
  Transmission Date: 20210717
  Serious: No
  Sender: FDA-Public Use
  Company Number: US-APOTEX-2021AP009565

PATIENT
  Age: 34 Year
  Sex: Female

DRUGS (1)
  1. GUANFACINE EXTENDED RELEASE TABLET [Suspect]
     Active Substance: GUANFACINE
     Indication: EPILEPSY
     Dosage: 1 DOSAGE FORM, Q.H.S.
     Route: 065

REACTIONS (7)
  - Skin discolouration [Not Recovered/Not Resolved]
  - Poor peripheral circulation [Unknown]
  - Fatigue [Not Recovered/Not Resolved]
  - Pain in extremity [Unknown]
  - Product contamination chemical [Unknown]
  - Somnolence [Not Recovered/Not Resolved]
  - Recalled product administered [Unknown]
